FAERS Safety Report 5523172-4 (Version None)
Quarter: 2007Q4

REPORT INFORMATION
  Report Type: 
  Country: None (occurrence: None)
  Receive Date: 20071116
  Receipt Date: 20071107
  Transmission Date: 20080405
  Serious: Yes (Hospitalization, Other)
  Sender: FDA-Public Use
  Company Number: 2007SP021367

PATIENT
  Age: 50 Year
  Sex: Female

DRUGS (2)
  1. PEG-INTRON [Suspect]
     Indication: HEPATITIS C
     Dosage: 80 MCG;QW;SC
     Route: 058
     Dates: start: 20061207, end: 20070927
  2. RIBAVIRIN [Suspect]
     Indication: HEPATITIS C
     Dosage: 800 MG;QD;PO
     Route: 048
     Dates: start: 20061207, end: 20070927

REACTIONS (6)
  - ANAEMIA [None]
  - BLOOD CALCIUM INCREASED [None]
  - NEOPLASM MALIGNANT [None]
  - NEUTROPENIA [None]
  - PARATHYROID DISORDER [None]
  - SARCOIDOSIS [None]
